FAERS Safety Report 8495878-9 (Version None)
Quarter: 2012Q3

REPORT INFORMATION
  Report Type: 
  Country: None (occurrence: None)
  Receive Date: 20120709
  Receipt Date: 20120703
  Transmission Date: 20120928
  Serious: No
  Sender: FDA-Public Use
  Company Number: US-PFIZER INC-2012160695

PATIENT
  Sex: Male
  Weight: 125 kg

DRUGS (4)
  1. TOPROL-XL [Concomitant]
     Indication: ARRHYTHMIA
     Dosage: 50 MG, DAILY
     Route: 048
  2. ACETYLSALICYLIC ACID [Concomitant]
     Indication: ARRHYTHMIA
     Dosage: 81 MG, DAILY
     Dates: start: 20120601
  3. CELEBREX [Suspect]
     Indication: ARTHRITIS
     Dosage: 200 MG, AS NEEDED
     Route: 048
     Dates: end: 20120601
  4. SYNTHROID [Concomitant]
     Indication: HYPOTHYROIDISM
     Dosage: 112 UG, DAILY
     Route: 048

REACTIONS (1)
  - HYPOPNOEA [None]
